FAERS Safety Report 14384675 (Version 2)
Quarter: 2018Q3

REPORT INFORMATION
  Report Type: Spontaneous
  Country: ES (occurrence: ES)
  Receive Date: 20180115
  Receipt Date: 20180711
  Transmission Date: 20181010
  Serious: Yes (Other)
  Sender: FDA-Public Use
  Company Number: ES-JNJFOC-20180113395

PATIENT
  Age: 39 Year
  Sex: Female

DRUGS (2)
  1. LAMIVUDINA [Suspect]
     Active Substance: LAMIVUDINE
     Indication: HIV INFECTION
     Route: 048
     Dates: start: 20171019, end: 20171221
  2. DARUNAVIR/COBICISTAT [Suspect]
     Active Substance: COBICISTAT\DARUNAVIR ETHANOLATE
     Indication: HIV INFECTION
     Dosage: 800 MG/150 MG
     Route: 048
     Dates: start: 20171019, end: 20171221

REACTIONS (3)
  - Nightmare [Recovering/Resolving]
  - Headache [Recovering/Resolving]
  - Abnormal dreams [Recovering/Resolving]

NARRATIVE: CASE EVENT DATE: 20171026
